FAERS Safety Report 8624831-7 (Version None)
Quarter: 2012Q3

REPORT INFORMATION
  Report Type: 
  Country: None (occurrence: None)
  Receive Date: 20120827
  Receipt Date: 20120127
  Transmission Date: 20120928
  Serious: No
  Sender: FDA-Public Use
  Company Number: US-009507513-1208USA009801

PATIENT

DRUGS (2)
  1. CLARITIN [Suspect]
     Indication: PRODUCT USED FOR UNKNOWN INDICATION
     Dosage: 1 DF, ONCE
     Route: 048
     Dates: start: 20120127, end: 20120127
  2. CLARITIN [Suspect]
     Dosage: 1 DF, ONCE
     Route: 048
     Dates: start: 20120127, end: 20120127

REACTIONS (1)
  - ACCIDENTAL OVERDOSE [None]
